FAERS Safety Report 9012000 (Version 1)
Quarter: 2013Q1

REPORT INFORMATION
  Report Type: Report from Study
  Country: US (occurrence: US)
  Receive Date: 20130114
  Receipt Date: 20130114
  Transmission Date: 20140127
  Serious: Yes (Hospitalization)
  Sender: FDA-Public Use
  Company Number: US-JNJFOC-20130102559

PATIENT
  Age: 10 None
  Sex: Male
  Weight: 43.55 kg

DRUGS (14)
  1. REMICADE [Suspect]
     Indication: SPONDYLITIS
     Dosage: DOSE: 500 (UNITS UNSPECIFIED)
     Route: 042
     Dates: start: 201205
  2. REMICADE [Suspect]
     Indication: SPONDYLITIS
     Dosage: DOSE: 200(UNITS UNSPECIFIED)
     Route: 042
     Dates: start: 201106, end: 201110
  3. REMICADE [Suspect]
     Indication: SPONDYLITIS
     Dosage: DOSE: 300(UNITS UNSPECIFIED)
     Route: 042
     Dates: start: 201110, end: 201201
  4. REMICADE [Suspect]
     Indication: SPONDYLITIS
     Dosage: DOSE: 400 (UNITS UNSPECIFIED)
     Route: 042
     Dates: start: 201201, end: 201205
  5. REMICADE [Suspect]
     Indication: ARTHRITIS
     Dosage: DOSE: 400 (UNITS UNSPECIFIED)
     Route: 042
     Dates: start: 201201, end: 201205
  6. REMICADE [Suspect]
     Indication: ARTHRITIS
     Dosage: DOSE: 500 (UNITS UNSPECIFIED)
     Route: 042
     Dates: start: 201205
  7. REMICADE [Suspect]
     Indication: ARTHRITIS
     Dosage: DOSE: 200(UNITS UNSPECIFIED)
     Route: 042
     Dates: start: 201106, end: 201110
  8. REMICADE [Suspect]
     Indication: ARTHRITIS
     Dosage: DOSE: 300(UNITS UNSPECIFIED)
     Route: 042
     Dates: start: 201110, end: 201201
  9. REMICADE [Suspect]
     Indication: COLITIS ULCERATIVE
     Dosage: DOSE: 300(UNITS UNSPECIFIED)
     Route: 042
     Dates: start: 201110, end: 201201
  10. REMICADE [Suspect]
     Indication: COLITIS ULCERATIVE
     Dosage: DOSE: 200(UNITS UNSPECIFIED)
     Route: 042
     Dates: start: 201106, end: 201110
  11. REMICADE [Suspect]
     Indication: COLITIS ULCERATIVE
     Dosage: DOSE: 500 (UNITS UNSPECIFIED)
     Route: 042
     Dates: start: 201205
  12. REMICADE [Suspect]
     Indication: COLITIS ULCERATIVE
     Dosage: DOSE: 400 (UNITS UNSPECIFIED)
     Route: 042
     Dates: start: 201201, end: 201205
  13. PREDNISONE [Suspect]
     Indication: ARTHRITIS
     Route: 042
     Dates: start: 201202, end: 201202
  14. METHOTREXATE [Concomitant]
     Route: 065

REACTIONS (3)
  - Glaucoma [Unknown]
  - Arthritis [Not Recovered/Not Resolved]
  - Adverse event [Unknown]
